FAERS Safety Report 21676470 (Version 2)
Quarter: 2022Q4

REPORT INFORMATION
  Report Type: Spontaneous
  Country: CN (occurrence: CN)
  Receive Date: 20221202
  Receipt Date: 20221219
  Transmission Date: 20230113
  Serious: Yes (Death, Hospitalization)
  Sender: FDA-Public Use
  Company Number: CN-MLMSERVICE-20221117-3924616-2

PATIENT
  Age: 6 Month
  Sex: Male
  Weight: 9.5 kg

DRUGS (4)
  1. HYDROCORTISONE [Suspect]
     Active Substance: HYDROCORTISONE
     Indication: Secondary adrenocortical insufficiency
     Route: 042
     Dates: start: 202002, end: 202002
  2. DEXAMETHASONE [Suspect]
     Active Substance: DEXAMETHASONE
     Indication: Secondary adrenocortical insufficiency
     Dosage: ONE TIME
     Route: 042
     Dates: start: 202002, end: 202002
  3. METHYLPREDNISOLONE [Suspect]
     Active Substance: METHYLPREDNISOLONE
     Indication: Necrotising enterocolitis neonatal
     Route: 065
     Dates: start: 2019, end: 2019
  4. MOMETASONE [Suspect]
     Active Substance: MOMETASONE
     Indication: Rash
     Route: 065

REACTIONS (2)
  - Cushingoid [Fatal]
  - Condition aggravated [Fatal]

NARRATIVE: CASE EVENT DATE: 20200201
